FAERS Safety Report 6425111-0 (Version None)
Quarter: 2009Q4

REPORT INFORMATION
  Report Type: 
  Country: None (occurrence: None)
  Receive Date: 20091102
  Receipt Date: 20091102
  Transmission Date: 20100525
  Serious: Yes (Hospitalization)
  Sender: FDA-Public Use
  Company Number: None

PATIENT
  Sex: Female
  Weight: 0.305 kg

DRUGS (2)
  1. GEMCITABINE HCL [Suspect]
     Indication: OPHTHALMIA NEONATORUM
     Dosage: ONE APPLICATION ONE TIME OPHTHALMIC
     Route: 047
     Dates: start: 20091016, end: 20091016
  2. GEMCITABINE HCL [Suspect]
     Indication: PROPHYLAXIS
     Dosage: ONE APPLICATION ONE TIME OPHTHALMIC
     Route: 047
     Dates: start: 20091016, end: 20091016

REACTIONS (5)
  - APPLICATION SITE DERMATITIS [None]
  - APPLICATION SITE DRYNESS [None]
  - APPLICATION SITE ERYTHEMA [None]
  - APPLICATION SITE IRRITATION [None]
  - APPLICATION SITE SCAB [None]
